FAERS Safety Report 4474984-X (Version None)
Quarter: 2004Q3

REPORT INFORMATION
  Report Type: 
  Country: None (occurrence: None)
  Receive Date: 20040923
  Receipt Date: 20040625
  Transmission Date: 20050211
  Serious: No
  Sender: FDA-Public Use
  Company Number: USA040671211

PATIENT
  Age: 67 Year
  Sex: Female

DRUGS (2)
  1. FORTEO [Suspect]
     Dosage: 20 UG DAY
     Dates: start: 20040619
  2. CORTISONE [Concomitant]

REACTIONS (3)
  - CHEST WALL PAIN [None]
  - DISORIENTATION [None]
  - MUSCLE SPASMS [None]
